FAERS Safety Report 5141326-6 (Version None)
Quarter: 2006Q4

REPORT INFORMATION
  Report Type: 
  Country: None (occurrence: None)
  Receive Date: 20061101
  Receipt Date: 20061023
  Transmission Date: 20070319
  Serious: Yes (Other)
  Sender: FDA-Public Use
  Company Number: IT-BRISTOL-MYERS SQUIBB COMPANY-13551080

PATIENT
  Age: 52 Year
  Sex: Male

DRUGS (2)
  1. CARBIDOPA + LEVODOPA CR TABS 25/100MG [Suspect]
     Indication: PARKINSON'S DISEASE
  2. PRAMIPEXOLE HCL [Concomitant]

REACTIONS (1)
  - STEREOTYPY [None]
